FAERS Safety Report 4384317-5 (Version None)
Quarter: 2004Q2

REPORT INFORMATION
  Report Type: 
  Country: None (occurrence: None)
  Receive Date: 20040621
  Receipt Date: 20031028
  Transmission Date: 20050107
  Serious: Yes (Other)
  Sender: FDA-Public Use
  Company Number: 2003115600

PATIENT
  Age: 42 Year
  Sex: Female

DRUGS (2)
  1. PHENYTOIN [Suspect]
     Indication: EPILEPSY
     Dosage: 650 MG DAILY ORAL
     Route: 048
     Dates: start: 20020101
  2. LEVETIRACETAM [Suspect]
     Indication: EPILEPSY
     Dosage: 1 GRAM DAILY ORAL
     Route: 048
     Dates: start: 20030811

REACTIONS (6)
  - ATAXIA [None]
  - CONVULSION [None]
  - DRUG INTERACTION [None]
  - INTENTIONAL OVERDOSE [None]
  - MEDICATION ERROR [None]
  - SOMNOLENCE [None]
